FAERS Safety Report 9174092 (Version 2)
Quarter: 2013Q2

REPORT INFORMATION
  Report Type: Spontaneous
  Country: US (occurrence: US)
  Receive Date: 20130320
  Receipt Date: 20130426
  Transmission Date: 20140414
  Serious: No
  Sender: FDA-Public Use
  Company Number: US-PFIZER INC-2013091019

PATIENT
  Sex: Female

DRUGS (3)
  1. INDERAL [Suspect]
     Dosage: UNK
  2. ATENOLOL [Suspect]
     Dosage: UNK
  3. LEVOTHYROXINE SODIUM [Suspect]
     Dosage: UNK

REACTIONS (2)
  - Visual impairment [Unknown]
  - Dry eye [Recovering/Resolving]
